FAERS Safety Report 6626154-4 (Version None)
Quarter: 2010Q1

REPORT INFORMATION
  Report Type: 
  Country: None (occurrence: None)
  Receive Date: 20100310
  Receipt Date: 20100225
  Transmission Date: 20100710
  Serious: Yes (Other)
  Sender: FDA-Public Use
  Company Number: PHHY2010NL13515

PATIENT
  Sex: Female
  Weight: 77 kg

DRUGS (14)
  1. TRILEPTAL [Suspect]
     Dosage: 300 MG, TID
  2. TRILEPTAL [Suspect]
     Dosage: 3DD 1 DF, 600-300-300
     Dates: start: 20040501
  3. FOLIC ACID [Concomitant]
     Dosage: 1DD 5 MG
     Dates: start: 20040501
  4. PUREGON [Concomitant]
  5. DECAPEPTYL [Concomitant]
  6. PROVERA [Concomitant]
  7. PREGNYL [Concomitant]
  8. MENOPUR [Concomitant]
  9. ESTROFEM [Concomitant]
  10. ORGALUTRAN [Concomitant]
  11. PROGESTIN INJ [Concomitant]
  12. ESTRADIOL [Concomitant]
  13. UTROGESTAN [Concomitant]
  14. CLOMID [Concomitant]

REACTIONS (2)
  - ABORTION SPONTANEOUS [None]
  - DRUG EXPOSURE DURING PREGNANCY [None]
